FAERS Safety Report 8832917 (Version 2)
Quarter: 2013Q2

REPORT INFORMATION
  Report Type: Spontaneous
  Country: US (occurrence: US)
  Receive Date: 20121010
  Receipt Date: 20130626
  Transmission Date: 20140414
  Serious: Yes (Death, Hospitalization)
  Sender: FDA-Public Use
  Company Number: PHHY2012US088037

PATIENT
  Age: 16 Year
  Sex: Female

DRUGS (2)
  1. MINOCYCLINE [Suspect]
     Indication: ACNE
  2. PREDNISONE [Concomitant]

REACTIONS (42)
  - Death [Fatal]
  - Drug reaction with eosinophilia and systemic symptoms [Unknown]
  - Pyrexia [Unknown]
  - Malaise [Unknown]
  - Fatigue [Unknown]
  - Urticaria [Unknown]
  - Lymphadenopathy [Unknown]
  - Rash maculo-papular [Unknown]
  - Generalised oedema [Unknown]
  - Face oedema [Unknown]
  - Leukocytosis [Unknown]
  - Eosinophilia [Unknown]
  - Hepatic enzyme increased [Unknown]
  - Cardiogenic shock [Unknown]
  - Eosinophilic myocarditis [Unknown]
  - Cardiomyopathy acute [Unknown]
  - Multi-organ failure [Unknown]
  - Colitis ischaemic [Not Recovered/Not Resolved]
  - Fungaemia [Unknown]
  - Bacteraemia [Unknown]
  - Hypotension [Unknown]
  - Pulmonary embolism [Not Recovered/Not Resolved]
  - Syncope [Unknown]
  - Orthopnoea [Unknown]
  - Chest pain [Unknown]
  - Nausea [Unknown]
  - Respiratory distress [Unknown]
  - Cardiac arrest [Unknown]
  - Unresponsive to stimuli [Unknown]
  - Ventricular failure [Unknown]
  - Renal failure acute [Unknown]
  - Ischaemia [Unknown]
  - Septic shock [Unknown]
  - Hyperbilirubinaemia [Unknown]
  - Pancreatitis [Unknown]
  - Respiratory failure [Unknown]
  - Food intolerance [Unknown]
  - Sepsis [Unknown]
  - Immunosuppression [Unknown]
  - Wound dehiscence [Unknown]
  - Catabolic state [Unknown]
  - Mental status changes [Unknown]
